FAERS Safety Report 9994913 (Version 1)
Quarter: 2014Q1

REPORT INFORMATION
  Report Type: Spontaneous
  Country: SZ (occurrence: None)
  Receive Date: 20140306
  Receipt Date: 20140306
  Transmission Date: 20141002
  Serious: Yes (Other)
  Sender: FDA-Public Use
  Company Number: 20140088

PATIENT
  Age: 47 Year
  Sex: Female
  Weight: 67 kg

DRUGS (4)
  1. FERINJECT (FERRIC CARBOXYMALTOSE - VIFOR) [Suspect]
     Indication: PRODUCT USED FOR UNKNOWN INDICATION
     Dosage: 1000 MG ( 1 IN 1 )
     Dates: start: 20131210, end: 20131210
  2. DEFALGAN (PARACETAMOL) [Concomitant]
  3. KENDURAL (SODIUM ASCORBATE/ FERROUS SULFATE) [Concomitant]
  4. METFIN (METFORMIN HYDROCHLORIDE) [Concomitant]

REACTIONS (4)
  - Influenza like illness [None]
  - Pain in extremity [None]
  - Pyrexia [None]
  - Hyperhidrosis [None]
